FAERS Safety Report 7612049-6 (Version None)
Quarter: 2011Q3

REPORT INFORMATION
  Report Type: 
  Country: None (occurrence: None)
  Receive Date: 20110715
  Receipt Date: 20110704
  Transmission Date: 20111222
  Serious: Yes (Other)
  Sender: FDA-Public Use
  Company Number: AT-UCBSA-036659

PATIENT
  Age: 51 Year
  Sex: Female

DRUGS (3)
  1. KEPPRA [Suspect]
     Route: 048
  2. LAMICTAL [Concomitant]
     Dates: start: 20101201
  3. VIMPAT [Suspect]
     Indication: PARTIAL SEIZURES
     Dosage: TITRATION 2X50 FOLLOWED 2X100 UP TO 2X200
     Route: 048
     Dates: start: 20101201

REACTIONS (2)
  - PARTIAL SEIZURES [None]
  - CONVULSION [None]
